FAERS Safety Report 6184732-3 (Version None)
Quarter: 2009Q2

REPORT INFORMATION
  Report Type: 
  Country: None (occurrence: None)
  Receive Date: 20090508
  Receipt Date: 20090505
  Transmission Date: 20091009
  Serious: Yes (Other)
  Sender: FDA-Public Use
  Company Number: US-ASTRAZENECA-2009UW11427

PATIENT
  Sex: Female

DRUGS (1)
  1. CRESTOR [Suspect]
     Route: 048

REACTIONS (4)
  - CARDIAC DISORDER [None]
  - MULTIPLE SCLEROSIS [None]
  - NEUROPATHY PERIPHERAL [None]
  - SYSTEMIC LUPUS ERYTHEMATOSUS [None]
